FAERS Safety Report 26125774 (Version 1)
Quarter: 2025Q4

REPORT INFORMATION
  Report Type: Spontaneous
  Country: CN (occurrence: CN)
  Receive Date: 20251205
  Receipt Date: 20251205
  Transmission Date: 20260117
  Serious: Yes (Hospitalization, Other)
  Sender: PFIZER
  Company Number: CN-PFIZER INC-PV202500141983

PATIENT
  Age: 16 Year
  Sex: Male
  Weight: 60 kg

DRUGS (5)
  1. CYTARABINE [Suspect]
     Active Substance: CYTARABINE
     Indication: Acute lymphocytic leukaemia
     Dosage: 0.1 G, 1X/DAY
     Route: 037
     Dates: start: 20251113, end: 20251113
  2. CYTARABINE [Suspect]
     Active Substance: CYTARABINE
     Dosage: 0.036 G, 1X/DAY
     Route: 037
     Dates: start: 20251114, end: 20251114
  3. METHOTREXATE [Suspect]
     Active Substance: METHOTREXATE
     Indication: Acute lymphocytic leukaemia
     Dosage: 0.1 G, 1X/DAY
     Route: 037
     Dates: start: 20251113, end: 20251113
  4. METHOTREXATE [Suspect]
     Active Substance: METHOTREXATE
     Dosage: 0.012 G, 1X/DAY
     Route: 037
     Dates: start: 20251114, end: 20251114
  5. LEUCOVORIN CALCIUM [Concomitant]
     Active Substance: LEUCOVORIN CALCIUM
     Indication: Drug toxicity prophylaxis
     Dosage: UNK
     Dates: start: 20251114

REACTIONS (1)
  - Acute kidney injury [Recovering/Resolving]

NARRATIVE: CASE EVENT DATE: 20251116
